FAERS Safety Report 22005807 (Version 2)
Quarter: 2023Q1

REPORT INFORMATION
  Report Type: Spontaneous
  Country: DE (occurrence: DE)
  Receive Date: 20230217
  Receipt Date: 20230306
  Transmission Date: 20230417
  Serious: Yes (Life-Threatening, Hospitalization, Other)
  Sender: FDA-Public Use
  Company Number: DE-ELI_LILLY_AND_COMPANY-DE202301012063

PATIENT
  Age: 46 Year
  Sex: Male

DRUGS (2)
  1. OLANZAPINE [Suspect]
     Active Substance: OLANZAPINE
     Indication: Delusional disorder, unspecified type
     Dosage: 5 MILLIGRAM, QD, 5 MG, DAILY (1/D)
     Route: 065
  2. CYANAMIDE [Concomitant]
     Active Substance: CYANAMIDE
     Indication: Alcoholism
     Dosage: 45 MILLIGRAM, QD, 45 MG, DAILY (1/D)
     Route: 065

REACTIONS (2)
  - Agranulocytosis [Recovered/Resolved]
  - Leukopenia [Recovered/Resolved]
